FAERS Safety Report 21171370 (Version 1)
Quarter: 2022Q3

REPORT INFORMATION
  Report Type: Spontaneous
  Country: US (occurrence: None)
  Receive Date: 20220803
  Receipt Date: 20220803
  Transmission Date: 20221027
  Serious: Yes (Other)
  Sender: FDA-Public Use
  Company Number: None

PATIENT
  Age: 54 Year
  Sex: Male
  Weight: 76.05 kg

DRUGS (22)
  1. BREXUCABTAGENE AUTOLEUCEL [Suspect]
     Active Substance: BREXUCABTAGENE AUTOLEUCEL
     Dosage: FREQUENCY : ONCE?
     Route: 041
     Dates: start: 20220119
  2. ALLOPURINOL [Concomitant]
     Active Substance: ALLOPURINOL
     Dates: start: 20220119, end: 20220121
  3. FIORICET [Concomitant]
     Active Substance: ACETAMINOPHEN\BUTALBITAL\CAFFEINE
     Dates: start: 20220120, end: 20220121
  4. CALCIUM CARBONATE [Concomitant]
     Active Substance: CALCIUM CARBONATE
     Dates: end: 20220203
  5. CALCIUM GLUCONATE [Concomitant]
     Active Substance: CALCIUM GLUCONATE
     Dates: end: 20220128
  6. CHLORHEXIDINE [Concomitant]
     Active Substance: CHLORHEXIDINE
     Dates: end: 20220203
  7. CIPROFLOXACIN [Concomitant]
     Active Substance: CIPROFLOXACIN
     Dates: start: 20220119, end: 20220121
  8. ENOXAPARIN [Concomitant]
     Active Substance: ENOXAPARIN
     Dates: end: 20220203
  9. FLUCONAZOLE [Concomitant]
     Active Substance: FLUCONAZOLE
     Dates: start: 20220119, end: 20220203
  10. HALOPERIDOL [Concomitant]
     Active Substance: HALOPERIDOL
     Dates: end: 20220203
  11. LACOSAMIDE [Concomitant]
     Active Substance: LACOSAMIDE
     Dates: end: 20220203
  12. LORAZEPAM [Concomitant]
     Active Substance: LORAZEPAM
     Dates: end: 20220129
  13. MAGNESIUM [Concomitant]
     Active Substance: MAGNESIUM
     Dates: end: 20220203
  14. MORPHINE SULFATE [Concomitant]
     Active Substance: MORPHINE SULFATE
     Dates: end: 20220130
  15. ONDANSETRON [Concomitant]
     Active Substance: ONDANSETRON
     Dates: end: 20220124
  16. OXYCODONE [Concomitant]
     Active Substance: OXYCODONE
     Dates: start: 20220120, end: 20220126
  17. POLYETHYLENE GLYCOL [Concomitant]
     Active Substance: POLYETHYLENE GLYCOL
     Dates: start: 20220121, end: 20220124
  18. POTASSIUM CHLORIDE [Concomitant]
     Active Substance: POTASSIUM CHLORIDE
     Dates: start: 20220120, end: 20220127
  19. POTASSIUM PHOSPHATE [Concomitant]
     Active Substance: POTASSIUM PHOSPHATE
     Dates: start: 20220121, end: 20220126
  20. SODIUM PHOSPHATE [Concomitant]
     Active Substance: SODIUM PHOSPHATE
     Dates: end: 20220126
  21. supersaturated calcium phosphate rinse [Concomitant]
     Dates: start: 20220119, end: 20220127
  22. VALACYCLOVIR [Concomitant]
     Active Substance: VALACYCLOVIR HYDROCHLORIDE
     Dates: start: 20220119, end: 20220203

REACTIONS (3)
  - Cytokine release syndrome [None]
  - Infusion related reaction [None]
  - Neurotoxicity [None]

NARRATIVE: CASE EVENT DATE: 20220122
